FAERS Safety Report 20062031 (Version 3)
Quarter: 2022Q2

REPORT INFORMATION
  Report Type: Other
  Country: US (occurrence: None)
  Receive Date: 20211112
  Receipt Date: 20220624
  Transmission Date: 20220721
  Serious: Yes (Hospitalization, Other)
  Sender: FDA-Public Use
  Company Number: US-ROCHE-2797506

PATIENT
  Age: 64 Year
  Sex: Female

DRUGS (2)
  1. XELODA [Suspect]
     Active Substance: CAPECITABINE
     Indication: Breast cancer metastatic
     Dosage: TAKE 3 TABLETS BY MOUTH TWICE DAILY FOR 14 DAYS THEN 7 DAYS OFF
     Route: 048
  2. XELODA [Suspect]
     Active Substance: CAPECITABINE
     Indication: Breast cancer female

REACTIONS (11)
  - Dry skin [Unknown]
  - Skin fissures [Unknown]
  - Rhinorrhoea [Unknown]
  - Cerebrovascular accident [Unknown]
  - Speech disorder [Unknown]
  - Blister [Unknown]
  - Facial bones fracture [Unknown]
  - Decreased immune responsiveness [Unknown]
  - Fall [Unknown]
  - Tooth loss [Unknown]
  - Nasopharyngitis [Unknown]

NARRATIVE: CASE EVENT DATE: 20211009
